FAERS Safety Report 7522333-2 (Version None)
Quarter: 2011Q2

REPORT INFORMATION
  Report Type: 
  Country: None (occurrence: None)
  Receive Date: 20110603
  Receipt Date: 20110524
  Transmission Date: 20111010
  Serious: Yes (Other)
  Sender: FDA-Public Use
  Company Number: US-TYCO HEALTHCARE/MALLINCKRODT-T201101114

PATIENT

DRUGS (3)
  1. DILAUDID [Concomitant]
  2. EXALGO [Suspect]
     Dosage: 16 MG, UNK
  3. EXALGO [Suspect]
     Dosage: 8 MG, UNK

REACTIONS (2)
  - ACCIDENTAL OVERDOSE [None]
  - DRUG INEFFECTIVE [None]
